FAERS Safety Report 8541144-2 (Version None)
Quarter: 2012Q3

REPORT INFORMATION
  Report Type: 
  Country: None (occurrence: None)
  Receive Date: 20120726
  Receipt Date: 20110915
  Transmission Date: 20120928
  Serious: No
  Sender: FDA-Public Use
  Company Number: US-ASTRAZENECA-2011SE55890

PATIENT
  Age: 46 Year
  Sex: Female

DRUGS (4)
  1. SEROQUEL [Suspect]
     Route: 048
  2. SEROQUEL [Suspect]
     Route: 048
  3. SEROQUEL [Suspect]
     Indication: MAJOR DEPRESSION
     Route: 048
  4. SEROQUEL [Suspect]
     Indication: POST-TRAUMATIC STRESS DISORDER
     Route: 048

REACTIONS (3)
  - BLOOD GLUCOSE ABNORMAL [None]
  - WEIGHT INCREASED [None]
  - DRUG PRESCRIBING ERROR [None]
